FAERS Safety Report 25816503 (Version 2)
Quarter: 2025Q4

REPORT INFORMATION
  Report Type: Spontaneous
  Country: US (occurrence: US)
  Receive Date: 20250918
  Receipt Date: 20251006
  Transmission Date: 20260117
  Serious: Yes (Life-Threatening, Hospitalization)
  Sender: TEVA
  Company Number: US-TEVA-VS-3370835

PATIENT
  Age: 14 Year
  Sex: Male
  Weight: 54.2 kg

DRUGS (21)
  1. PREDNISONE [Suspect]
     Active Substance: PREDNISONE
     Indication: Asthmatic crisis
     Route: 048
  2. METHYLPREDNISOLONE [Suspect]
     Active Substance: METHYLPREDNISOLONE
     Indication: Asthmatic crisis
     Route: 042
  3. HELIUM OXYGEN [Suspect]
     Active Substance: HELIUM\OXYGEN
     Indication: Asthmatic crisis
     Dosage: MIXTURE OF 70%/30%
     Route: 065
  4. ROCURONIUM BROMIDE [Concomitant]
     Active Substance: ROCURONIUM BROMIDE
     Indication: Neuromuscular blocking therapy
  5. KETAMINE [Suspect]
     Active Substance: KETAMINE
     Indication: Asthmatic crisis
     Dosage: INTRAVENOUS (NOT OTHERWISE SPECIFIED)
     Route: 065
  6. KETAMINE [Suspect]
     Active Substance: KETAMINE
     Indication: Asthmatic crisis
     Dosage: INTRAVENOUS BOLUS
     Route: 065
  7. LORAZEPAM [Concomitant]
     Active Substance: LORAZEPAM
     Indication: Anxiety
     Route: 065
  8. IPRATROPIUM [Suspect]
     Active Substance: IPRATROPIUM
     Indication: Asthmatic crisis
     Dosage: IPRATROPIUM-BROMIDE, AEROSOL
     Route: 065
  9. DEXMEDETOMIDINE [Suspect]
     Active Substance: DEXMEDETOMIDINE
     Indication: Asthmatic crisis
     Dosage: BOLUS
     Route: 065
  10. DEXMEDETOMIDINE [Suspect]
     Active Substance: DEXMEDETOMIDINE
     Indication: Asthmatic crisis
     Route: 065
  11. DEXMEDETOMIDINE [Suspect]
     Active Substance: DEXMEDETOMIDINE
     Indication: Asthmatic crisis
     Route: 065
  12. MAGNESIUM SULFATE [Suspect]
     Active Substance: MAGNESIUM SULFATE
     Indication: Asthmatic crisis
     Dosage: INTRAVENOUS (NOT OTHERWISE SPECIFIED)
     Route: 065
  13. MAGNESIUM SULFATE [Suspect]
     Active Substance: MAGNESIUM SULFATE
     Indication: Asthmatic crisis
     Dosage: OVER 20 MINS (INTRAVENOUS BOLUS)
     Route: 065
  14. MAGNESIUM SULFATE [Suspect]
     Active Substance: MAGNESIUM SULFATE
     Indication: Asthmatic crisis
     Dosage: INTRAVENOUS (NOT OTHERWISE SPECIFIED)
     Route: 065
  15. MAGNESIUM OXIDE [Suspect]
     Active Substance: MAGNESIUM OXIDE
     Indication: Asthmatic crisis
     Dosage: RECEIVED TWO BOLUSES (INTRAVENOUS BOLUS)
     Route: 065
  16. AMINOPHYLLINE [Suspect]
     Active Substance: AMINOPHYLLINE
     Indication: Asthmatic crisis
     Route: 042
  17. ALBUTEROL\IPRATROPIUM [Suspect]
     Active Substance: ALBUTEROL\IPRATROPIUM
     Indication: Asthmatic crisis
     Dosage: VIA NEBULISER; FOR 3 DOSES, IPRATROPIUM-ALBUTEROL, RESPIRATORY (INHALATION)
     Route: 065
  18. SEVOFLURANE [Suspect]
     Active Substance: SEVOFLURANE
     Indication: Asthmatic crisis
     Dosage: 2.1% ON THE FLOW-I VENTILATOR, RESPIRATORY (INHALATION)
     Route: 065
  19. SEVOFLURANE [Suspect]
     Active Substance: SEVOFLURANE
     Indication: Asthmatic crisis
     Dosage: 8% ON THE FLOW-I VENTILATOR, RESPIRATORY (INHALATION)
     Route: 065
  20. ALBUTEROL [Suspect]
     Active Substance: ALBUTEROL
     Indication: Asthmatic crisis
     Dosage: VIA NEBULIZER, RESPIRATORY (INHALATION)
     Route: 065
  21. ALBUTEROL [Suspect]
     Active Substance: ALBUTEROL
     Indication: Asthmatic crisis
     Dosage: VIA NEBULISER; FOR 3 DOSES, RESPIRATORY (INHALATION)
     Route: 065

REACTIONS (3)
  - Drug ineffective [Unknown]
  - Hypotension [Unknown]
  - Hyperkalaemia [Recovered/Resolved]
